FAERS Safety Report 8924023 (Version 1)
Quarter: 2012Q4

REPORT INFORMATION
  Report Type: 
  Country: GB (occurrence: GB)
  Receive Date: 20121126
  Receipt Date: 20121126
  Transmission Date: 20130627
  Serious: Yes (Disabling)
  Sender: FDA-Public Use
  Company Number: GB-ASTRAZENECA-2012SE87496

PATIENT
  Age: 60 Year
  Sex: Female

DRUGS (3)
  1. LIDOCAINE [Suspect]
     Route: 065
  2. DEPO-MEDRONE [Suspect]
     Route: 065
  3. ZAPONEX [Suspect]
     Route: 048
     Dates: start: 20040810, end: 201209

REACTIONS (5)
  - Periarthritis [Unknown]
  - Musculoskeletal pain [Unknown]
  - Malaise [Unknown]
  - Nausea [Unknown]
  - Vomiting [Unknown]
